FAERS Safety Report 12393515 (Version 3)
Quarter: 2019Q1

REPORT INFORMATION
  Report Type: Spontaneous
  Country: US (occurrence: US)
  Receive Date: 20160523
  Receipt Date: 20190305
  Transmission Date: 20190417
  Serious: No
  Sender: FDA-Public Use
  Company Number: US-BAYER-2016-098455

PATIENT
  Age: 89 Year
  Sex: Female
  Weight: 58.5 kg

DRUGS (3)
  1. PSYLLIUM HYDROPHILIC MUCILLOID [Concomitant]
     Active Substance: PSYLLIUM HUSK
  2. MIRALAX [Suspect]
     Active Substance: POLYETHYLENE GLYCOL 3350
     Indication: GASTROINTESTINAL DISORDER
     Dosage: 1 DF
     Route: 048
  3. MIRALAX [Suspect]
     Active Substance: POLYETHYLENE GLYCOL 3350
     Indication: CONSTIPATION
     Dosage: UNK, QD
     Route: 048
     Dates: start: 20160505

REACTIONS (6)
  - Wrong technique in product usage process [None]
  - Wrong technique in product usage process [Unknown]
  - Drug ineffective [None]
  - Underdose [None]
  - Incorrect product administration duration [None]
  - Abdominal distension [Unknown]

NARRATIVE: CASE EVENT DATE: 20160505
